FAERS Safety Report 11833500 (Version 1)
Quarter: 2015Q4

REPORT INFORMATION
  Report Type: Spontaneous
  Country: ES (occurrence: ES)
  Receive Date: 20151214
  Receipt Date: 20151214
  Transmission Date: 20160305
  Serious: Yes (Hospitalization)
  Sender: FDA-Public Use
  Company Number: ES-DSJP-DSU-2015-138742

PATIENT

DRUGS (1)
  1. OPENVAS 10 MG [Suspect]
     Active Substance: OLMESARTAN MEDOXOMIL
     Indication: HYPERTENSION
     Dosage: 10 MG, BID
     Route: 048
     Dates: start: 20121011, end: 20151004

REACTIONS (3)
  - Face oedema [Unknown]
  - Generalised oedema [Unknown]
  - Oedema [Unknown]

NARRATIVE: CASE EVENT DATE: 20140201
